APPROVED DRUG PRODUCT: PRIMIDONE
Active Ingredient: PRIMIDONE
Strength: 50MG
Dosage Form/Route: TABLET;ORAL
Application: A214896 | Product #001 | TE Code: AB
Applicant: RUBICON RESEARCH LTD
Approved: Jun 28, 2022 | RLD: No | RS: No | Type: RX